FAERS Safety Report 8496527-6 (Version None)
Quarter: 2012Q3

REPORT INFORMATION
  Report Type: 
  Country: None (occurrence: None)
  Receive Date: 20120709
  Receipt Date: 20120705
  Transmission Date: 20120928
  Serious: No
  Sender: FDA-Public Use
  Company Number: US-B.I. PHARMACEUTICALS,INC./RIDGEFIELD-2012-BP-15077BP

PATIENT
  Sex: Female

DRUGS (3)
  1. PRADAXA [Suspect]
     Indication: ANTICOAGULANT THERAPY
     Dosage: 150 MG
     Route: 048
     Dates: start: 20120101
  2. LOSARTAN POTASSIUM [Concomitant]
     Route: 048
     Dates: start: 20120101
  3. ALEVE [Concomitant]
     Indication: PAIN
     Route: 048

REACTIONS (4)
  - ASTHENIA [None]
  - DEPRESSION [None]
  - WEIGHT INCREASED [None]
  - ARTHRITIS [None]
